FAERS Safety Report 23886050 (Version 1)
Quarter: 2024Q2

REPORT INFORMATION
  Report Type: Spontaneous
  Country: US (occurrence: US)
  Receive Date: 20240522
  Receipt Date: 20240522
  Transmission Date: 20240716
  Serious: Yes (Other)
  Sender: FDA-Public Use
  Company Number: US-ELI_LILLY_AND_COMPANY-US202405010761

PATIENT
  Age: 50 Year
  Sex: Male

DRUGS (18)
  1. TIRZEPATIDE [Suspect]
     Active Substance: TIRZEPATIDE
     Indication: Product used for unknown indication
     Dosage: UNK UNK, WEEKLY (1/W)
     Route: 058
     Dates: start: 2023
  2. TIRZEPATIDE [Suspect]
     Active Substance: TIRZEPATIDE
     Indication: Product used for unknown indication
     Dosage: UNK UNK, WEEKLY (1/W)
     Route: 058
     Dates: start: 2023
  3. TIRZEPATIDE [Suspect]
     Active Substance: TIRZEPATIDE
     Indication: Product used for unknown indication
     Dosage: UNK UNK, WEEKLY (1/W)
     Route: 058
     Dates: start: 2023
  4. TIRZEPATIDE [Suspect]
     Active Substance: TIRZEPATIDE
     Indication: Product used for unknown indication
     Dosage: UNK UNK, WEEKLY (1/W)
     Route: 058
     Dates: start: 2023
  5. TIRZEPATIDE [Suspect]
     Active Substance: TIRZEPATIDE
     Dosage: 7.5 MG, WEEKLY (1/W)
     Route: 058
     Dates: start: 2023
  6. TIRZEPATIDE [Suspect]
     Active Substance: TIRZEPATIDE
     Dosage: 7.5 MG, WEEKLY (1/W)
     Route: 058
     Dates: start: 2023
  7. TIRZEPATIDE [Suspect]
     Active Substance: TIRZEPATIDE
     Dosage: 7.5 MG, WEEKLY (1/W)
     Route: 058
     Dates: start: 2023
  8. TIRZEPATIDE [Suspect]
     Active Substance: TIRZEPATIDE
     Dosage: 7.5 MG, WEEKLY (1/W)
     Route: 058
     Dates: start: 2023
  9. TIRZEPATIDE [Suspect]
     Active Substance: TIRZEPATIDE
     Indication: Product used for unknown indication
     Dosage: 10 MG, WEEKLY (1/W)
     Route: 058
  10. TIRZEPATIDE [Suspect]
     Active Substance: TIRZEPATIDE
     Indication: Product used for unknown indication
     Dosage: 10 MG, WEEKLY (1/W)
     Route: 058
  11. TIRZEPATIDE [Suspect]
     Active Substance: TIRZEPATIDE
     Indication: Product used for unknown indication
     Dosage: 10 MG, WEEKLY (1/W)
     Route: 058
  12. TIRZEPATIDE [Suspect]
     Active Substance: TIRZEPATIDE
     Indication: Product used for unknown indication
     Dosage: 10 MG, WEEKLY (1/W)
     Route: 058
  13. ATORVASTATIN [Concomitant]
     Active Substance: ATORVASTATIN
     Indication: Product used for unknown indication
     Dosage: 40 MG, DAILY
     Route: 048
  14. IBUPROFEN [Concomitant]
     Active Substance: IBUPROFEN
     Indication: Product used for unknown indication
     Dosage: 400 MG, TID
     Route: 048
  15. METFORMIN [Concomitant]
     Active Substance: METFORMIN HYDROCHLORIDE
     Indication: Product used for unknown indication
     Dosage: 500 MG, BID
     Route: 048
  16. LEVOTHYROXINE [Concomitant]
     Active Substance: LEVOTHYROXINE\LEVOTHYROXINE SODIUM
     Indication: Product used for unknown indication
     Dosage: 75 UG, DAILY
     Route: 048
  17. OXYBUTYNIN [Concomitant]
     Active Substance: OXYBUTYNIN\OXYBUTYNIN CHLORIDE
     Indication: Product used for unknown indication
     Dosage: 5 MG, DAILY
     Route: 048
  18. TAMSULOSIN [Concomitant]
     Active Substance: TAMSULOSIN
     Indication: Product used for unknown indication
     Dosage: 0.4 MG, DAILY
     Route: 048

REACTIONS (8)
  - Pancreatitis [Unknown]
  - Cholestasis [Unknown]
  - Nephrolithiasis [Unknown]
  - Hepatic steatosis [Unknown]
  - Urinary tract infection [Unknown]
  - Flank pain [Unknown]
  - Bowel movement irregularity [Unknown]
  - Nausea [Unknown]

NARRATIVE: CASE EVENT DATE: 20240401
